FAERS Safety Report 21915079 (Version 1)
Quarter: 2023Q1

REPORT INFORMATION
  Report Type: Spontaneous
  Country: US (occurrence: US)
  Receive Date: 20230126
  Receipt Date: 20230126
  Transmission Date: 20230418
  Serious: No
  Sender: FDA-Public Use
  Company Number: US-CATALYST PHARMACEUTICALS, INC-2021CAT00513

PATIENT
  Age: 66 Year
  Sex: Female
  Weight: 56.689 kg

DRUGS (5)
  1. FIRDAPSE [Suspect]
     Active Substance: AMIFAMPRIDINE PHOSPHATE
     Indication: Myasthenic syndrome
     Dosage: 3 TABLETS (30 MG), 3X/DAY
     Route: 048
  2. FIRDAPSE [Suspect]
     Active Substance: AMIFAMPRIDINE PHOSPHATE
     Dosage: 30 MG, 3X/DAY
     Route: 048
  3. PYRIDOSTIGMINE [Concomitant]
     Active Substance: PYRIDOSTIGMINE
     Dosage: 60 MG, 2X/DAY
  4. PYRIDOSTIGMINE [Concomitant]
     Active Substance: PYRIDOSTIGMINE
     Dosage: 180 MG, 1X/DAY
  5. RILUZOLE [Concomitant]
     Active Substance: RILUZOLE
     Dosage: 50 MG, 2X/DAY

REACTIONS (3)
  - Prescribed overdose [Not Recovered/Not Resolved]
  - Extra dose administered [Recovered/Resolved]
  - Abdominal pain upper [Recovered/Resolved]

NARRATIVE: CASE EVENT DATE: 20211201
